FAERS Safety Report 17193434 (Version 1)
Quarter: 2019Q4

REPORT INFORMATION
  Report Type: Spontaneous
  Country: US (occurrence: US)
  Receive Date: 20191223
  Receipt Date: 20191223
  Transmission Date: 20200122
  Serious: Yes (Other)
  Sender: FDA-Public Use
  Company Number: US-NAPPMUNDI-USA-2019-0149436

PATIENT
  Sex: Male

DRUGS (1)
  1. BUTRANS [Suspect]
     Active Substance: BUPRENORPHINE
     Indication: PRODUCT USED FOR UNKNOWN INDICATION
     Route: 062

REACTIONS (7)
  - Haemochromatosis [Unknown]
  - Product adhesion issue [Unknown]
  - Back pain [Unknown]
  - Neoplasm malignant [Unknown]
  - Pain [Unknown]
  - Bedridden [Unknown]
  - Unevaluable event [Unknown]
